FAERS Safety Report 9679094 (Version 3)
Quarter: 2015Q2

REPORT INFORMATION
  Report Type: Spontaneous
  Country: US (occurrence: US)
  Receive Date: 20131108
  Receipt Date: 20150611
  Transmission Date: 20150821
  Serious: Yes (Other)
  Sender: FDA-Public Use
  Company Number: US-NOVOPROD-391284

PATIENT
  Age: 42 Year
  Sex: Female

DRUGS (1)
  1. NORDITROPIN [Suspect]
     Active Substance: SOMATROPIN
     Indication: GROWTH HORMONE DEFICIENCY
     Route: 058

REACTIONS (3)
  - Product physical issue [Recovered/Resolved]
  - Sepsis [Recovered/Resolved]
  - Suspected transmission of an infectious agent via product [Recovered/Resolved]

NARRATIVE: CASE EVENT DATE: 201310
